FAERS Safety Report 24867706 (Version 1)
Quarter: 2025Q1

REPORT INFORMATION
  Report Type: Spontaneous
  Country: DE (occurrence: DE)
  Receive Date: 20250121
  Receipt Date: 20250121
  Transmission Date: 20250409
  Serious: Yes (Hospitalization, Other)
  Sender: ROCHE
  Company Number: None

PATIENT
  Sex: Female
  Weight: 1.49 kg

DRUGS (1)
  1. ZELBORAF [Suspect]
     Active Substance: VEMURAFENIB
     Indication: Product used for unknown indication
     Dosage: (2X960 MG)
     Route: 064
     Dates: start: 202302, end: 202303

REACTIONS (7)
  - Neutropenia neonatal [Recovering/Resolving]
  - Foetal exposure during pregnancy [Unknown]
  - Premature baby [Unknown]
  - Neonatal respiratory distress syndrome [Unknown]
  - Apnoea [Unknown]
  - Bradycardia neonatal [Unknown]
  - Selective eating disorder [Unknown]
